FAERS Safety Report 8495819-4 (Version None)
Quarter: 2012Q3

REPORT INFORMATION
  Report Type: 
  Country: None (occurrence: None)
  Receive Date: 20120709
  Receipt Date: 20120629
  Transmission Date: 20120928
  Serious: Yes (Hospitalization, Other)
  Sender: FDA-Public Use
  Company Number: PHHY2011US25495

PATIENT
  Sex: Female

DRUGS (15)
  1. TRAZODONE HCL [Concomitant]
     Dosage: 50 MG, UNK
  2. AMPICILLIN [Concomitant]
     Dosage: 1 DF, BID
     Route: 048
  3. FERROUS FUMARATE [Concomitant]
     Dosage: 1 DF, QD
  4. LAMICTAL [Concomitant]
     Dosage: UNK UKN, UNK
  5. ASPIRIN [Concomitant]
     Dosage: UNK UKN, UNK
  6. LEVONORGESTREL [Concomitant]
  7. PEPCID [Concomitant]
     Dosage: 40 MG, QD
  8. PREDNISONE [Concomitant]
     Dosage: 1 DF, TID
  9. TYSABRI [Concomitant]
     Dosage: 300 MG, QW4
  10. PROTONIX [Concomitant]
  11. GILENYA [Suspect]
     Indication: RELAPSING-REMITTING MULTIPLE SCLEROSIS
     Dosage: 0.5 MG, QD
     Route: 048
     Dates: start: 20101229, end: 20110323
  12. PHENAZOPYRIDINE HCL TAB [Concomitant]
     Dosage: 1 DF, TID
  13. MULTI-VITAMIN [Concomitant]
     Dosage: UNK UKN, UNK
  14. LEXAPRO [Concomitant]
     Dosage: 20 MG, UNK
     Route: 048
  15. BENADRYL [Concomitant]

REACTIONS (52)
  - MULTIPLE SCLEROSIS RELAPSE [None]
  - APHASIA [None]
  - ANGER [None]
  - AFFECTIVE DISORDER [None]
  - CARDIAC MYXOMA [None]
  - PHLEBITIS [None]
  - MICTURITION URGENCY [None]
  - DRUG INEFFECTIVE [None]
  - CENTRAL NERVOUS SYSTEM LESION [None]
  - HEMIPARESIS [None]
  - FATIGUE [None]
  - SOMNOLENCE [None]
  - URINARY RETENTION [None]
  - COGNITIVE DISORDER [None]
  - HYPOAESTHESIA [None]
  - LOSS OF CONSCIOUSNESS [None]
  - OPTIC NEURITIS [None]
  - JUDGEMENT IMPAIRED [None]
  - INCONTINENCE [None]
  - DIZZINESS [None]
  - ATROPHY [None]
  - DYSPHONIA [None]
  - BRAIN OEDEMA [None]
  - UNRESPONSIVE TO STIMULI [None]
  - GAIT DISTURBANCE [None]
  - SCOTOMA [None]
  - CONFUSIONAL STATE [None]
  - AFFECT LABILITY [None]
  - DYSURIA [None]
  - POLLAKIURIA [None]
  - DEHYDRATION [None]
  - INTRACRANIAL PRESSURE INCREASED [None]
  - BRAIN HERNIATION [None]
  - SPEECH DISORDER [None]
  - DEEP VEIN THROMBOSIS [None]
  - CYSTITIS [None]
  - PERSONALITY CHANGE [None]
  - AGGRESSION [None]
  - HEADACHE [None]
  - CONVULSION [None]
  - PUPILLARY DEFORMITY [None]
  - EYE PAIN [None]
  - NYSTAGMUS [None]
  - ANXIETY [None]
  - DEPRESSION [None]
  - INFLUENZA [None]
  - ASTHENIA [None]
  - HOSTILITY [None]
  - MEMORY IMPAIRMENT [None]
  - VISUAL ACUITY REDUCED [None]
  - EATING DISORDER [None]
  - MUSCULOSKELETAL STIFFNESS [None]
